FAERS Safety Report 11930093 (Version 3)
Quarter: 2016Q1

REPORT INFORMATION
  Report Type: Spontaneous
  Country: US (occurrence: US)
  Receive Date: 20160120
  Receipt Date: 20160307
  Transmission Date: 20160526
  Serious: Yes (Hospitalization, Other)
  Sender: FDA-Public Use
  Company Number: US-ELI_LILLY_AND_COMPANY-US201601005392

PATIENT
  Sex: Male
  Weight: 70.75 kg

DRUGS (2)
  1. TAXOL [Suspect]
     Active Substance: PACLITAXEL
     Indication: OESOPHAGEAL CARCINOMA
     Dosage: UNK UNK, UNKNOWN
     Route: 065
     Dates: start: 20150218
  2. CYRAMZA [Suspect]
     Active Substance: RAMUCIRUMAB
     Indication: OESOPHAGEAL CARCINOMA
     Dosage: 8 MG/KG, CYCLICAL
     Route: 042
     Dates: start: 20150218, end: 20151117

REACTIONS (3)
  - Malignant neoplasm progression [Unknown]
  - Epistaxis [Unknown]
  - Haemoglobin decreased [Unknown]
